FAERS Safety Report 7039218-0 (Version None)
Quarter: 2010Q4

REPORT INFORMATION
  Report Type: 
  Country: None (occurrence: None)
  Receive Date: 20101012
  Receipt Date: 20101011
  Transmission Date: 20110411
  Serious: Yes (Death)
  Sender: FDA-Public Use
  Company Number: US-JNJFOC-20070700844

PATIENT
  Sex: Male
  Weight: 97.07 kg

DRUGS (6)
  1. DURAGESIC-100 [Suspect]
     Indication: PRODUCT USED FOR UNKNOWN INDICATION
     Route: 062
  2. ROXICET [Concomitant]
     Route: 065
  3. UNSPECIFIED ANTIBIOTIC [Concomitant]
     Route: 065
  4. DIPHENHYDRAMINE [Concomitant]
  5. METOCLOPRAMIDE [Concomitant]
  6. PROMETHAZINE [Concomitant]

REACTIONS (2)
  - DRUG PRESCRIBING ERROR [None]
  - NARCOTIC INTOXICATION [None]
